FAERS Safety Report 9160569 (Version 1)
Quarter: 2013Q1

REPORT INFORMATION
  Report Type: Spontaneous
  Country: FR (occurrence: None)
  Receive Date: 20130215
  Receipt Date: 20130215
  Transmission Date: 20140127
  Serious: Yes (Hospitalization)
  Sender: FDA-Public Use
  Company Number: DSM-2013-00188

PATIENT
  Age: 67 Year
  Sex: Female

DRUGS (2)
  1. COOLMETEC [Suspect]
     Indication: HYPERTENSION
     Route: 048
     Dates: start: 20121129, end: 20121215
  2. MONO TILDIEM [Suspect]
     Route: 048
     Dates: start: 20121129, end: 20121215

REACTIONS (3)
  - Toxic skin eruption [None]
  - Acute generalised exanthematous pustulosis [None]
  - Eczema [None]
